FAERS Safety Report 7933607 (Version 3)
Quarter: 2014Q1

REPORT INFORMATION
  Report Type: Spontaneous
  Country: US (occurrence: US)
  Receive Date: 20110506
  Receipt Date: 20140206
  Transmission Date: 20141002
  Serious: Yes (Hospitalization)
  Sender: FDA-Public Use
  Company Number: US-BAYER-2011-038356

PATIENT
  Age: 16 Year
  Sex: Female
  Weight: 68 kg

DRUGS (2)
  1. YASMIN [Suspect]
     Dosage: UNK
     Dates: start: 2007, end: 20080220
  2. YAZ [Suspect]
     Dosage: UNK
     Dates: start: 2007, end: 20080706

REACTIONS (8)
  - Biliary dyskinesia [None]
  - Cholelithiasis [None]
  - Injury [None]
  - Fear [None]
  - Anxiety [None]
  - Anhedonia [None]
  - Quality of life decreased [None]
  - Pain [None]
